FAERS Safety Report 9750929 (Version 1)
Quarter: 2013Q4

REPORT INFORMATION
  Report Type: Spontaneous
  Country: DE (occurrence: DE)
  Receive Date: 20131212
  Receipt Date: 20131212
  Transmission Date: 20140711
  Serious: Yes (Hospitalization, Congenital Anomaly)
  Sender: FDA-Public Use
  Company Number: DE-MYLANLABS-2013S1026989

PATIENT
  Sex: Female
  Weight: 3.21 kg

DRUGS (2)
  1. OMEPRAZOLE [Suspect]
     Dosage: 40 [MG/D (BIS 20) ]
     Route: 064
     Dates: end: 20090213
  2. FEMIBION /01597501/ [Concomitant]
     Route: 064

REACTIONS (5)
  - Coarctation of the aorta [Recovered/Resolved with Sequelae]
  - Patent ductus arteriosus [Unknown]
  - Atrial septal defect [Unknown]
  - Bicuspid aortic valve [Not Recovered/Not Resolved]
  - Exposure during pregnancy [Unknown]
